FAERS Safety Report 4422506-1 (Version None)
Quarter: 2004Q3

REPORT INFORMATION
  Report Type: 
  Country: None (occurrence: None)
  Receive Date: 20040806
  Receipt Date: 20040726
  Transmission Date: 20050211
  Serious: Yes (Hospitalization)
  Sender: FDA-Public Use
  Company Number: 04P-163-0268078-00

PATIENT

DRUGS (10)
  1. HUMIRA [Suspect]
     Indication: RHEUMATOID ARTHRITIS
     Dosage: 40 MG, 1 IN 2 WK, SUBCUTANEOUS
     Route: 058
     Dates: start: 20030101, end: 20040518
  2. FUROSEMIDE [Concomitant]
  3. POTASSIUM [Concomitant]
  4. QUINAPRIL HYDROCHLORIDE [Concomitant]
  5. HYDROCODONE [Concomitant]
  6. CELECOXIB [Concomitant]
  7. CLONIDINE HCL [Concomitant]
  8. CYCLOBENZAPRINE HCL [Concomitant]
  9. CEPHALEXIN [Concomitant]
  10. PREDNISONE [Concomitant]

REACTIONS (6)
  - CARDIAC FAILURE CONGESTIVE [None]
  - CHEST PAIN [None]
  - DIZZINESS [None]
  - HYPOAESTHESIA [None]
  - PAIN IN EXTREMITY [None]
  - PITTING OEDEMA [None]
